FAERS Safety Report 14307617 (Version 1)
Quarter: 2017Q4

REPORT INFORMATION
  Report Type: Spontaneous
  Country: US (occurrence: US)
  Receive Date: 20171219
  Receipt Date: 20171219
  Transmission Date: 20180321
  Serious: No
  Sender: FDA-Public Use
  Company Number: None

PATIENT
  Sex: Female

DRUGS (7)
  1. ASPIRIN. [Concomitant]
     Active Substance: ASPIRIN
  2. EXEMESTANE 25 MG [Suspect]
     Active Substance: EXEMESTANE
     Route: 048
     Dates: start: 20160114
  3. IMDUR [Concomitant]
     Active Substance: ISOSORBIDE MONONITRATE
  4. POTASSIUM [Concomitant]
     Active Substance: POTASSIUM
  5. MAG OXIDE [Concomitant]
     Active Substance: MAGNESIUM OXIDE
  6. MAGNESIUM [Concomitant]
     Active Substance: MAGNESIUM
  7. XANAX [Concomitant]
     Active Substance: ALPRAZOLAM

REACTIONS (1)
  - Hepatic cancer [None]
